FAERS Safety Report 7529375 (Version 5)
Quarter: 2012Q4

REPORT INFORMATION
  Report Type: 
  Country: US (occurrence: US)
  Receive Date: 20100805
  Receipt Date: 20120905
  Transmission Date: 20130627
  Serious: Yes (Hospitalization, Other)
  Sender: FDA-Public Use
  Company Number: US-BAYER-201029545NA

PATIENT
  Age: 29 Year
  Sex: Female
  Weight: 95.24 kg

DRUGS (5)
  1. YAZ [Suspect]
     Indication: PRODUCT USED FOR UNKNOWN INDICATION
  2. YASMIN [Suspect]
     Indication: CONTRACEPTION
     Dosage: UNK
     Dates: start: 200602, end: 200805
  3. ANTIMIGRAINE PREPARATIONS [Concomitant]
     Dosage: UNK
     Dates: start: 2008
  4. VITAMIN C [Concomitant]
     Dosage: UNK
     Dates: start: 2008
  5. IBUPROFEN [Concomitant]

REACTIONS (2)
  - Cerebrovascular accident [None]
  - Transient ischaemic attack [None]
